FAERS Safety Report 6472112-2 (Version None)
Quarter: 2009Q4

REPORT INFORMATION
  Report Type: 
  Country: None (occurrence: None)
  Receive Date: 20091203
  Receipt Date: 20080411
  Transmission Date: 20100525
  Serious: Yes (Other)
  Sender: FDA-Public Use
  Company Number: US-ELI_LILLY_AND_COMPANY-US200804003221

PATIENT
  Sex: Female

DRUGS (3)
  1. HUMULIN R [Suspect]
     Dosage: UNK, UNK
  2. HUMALOG [Suspect]
  3. LANTUS [Concomitant]

REACTIONS (9)
  - BLOOD GLUCOSE INCREASED [None]
  - DRUG INEFFECTIVE [None]
  - INTERVERTEBRAL DISC PROTRUSION [None]
  - JOINT DISLOCATION [None]
  - LIMB DEFORMITY [None]
  - LOWER LIMB FRACTURE [None]
  - PAIN [None]
  - PELVIC DEFORMITY [None]
  - ROAD TRAFFIC ACCIDENT [None]
